FAERS Safety Report 5047284-7 (Version None)
Quarter: 2006Q3

REPORT INFORMATION
  Report Type: 
  Country: None (occurrence: None)
  Receive Date: 20060711
  Receipt Date: 20060629
  Transmission Date: 20061208
  Serious: Yes (Other)
  Sender: FDA-Public Use
  Company Number: US-JNJFOC-20060700595

PATIENT
  Sex: Female

DRUGS (3)
  1. REMICADE [Suspect]
     Dosage: RECEIVED 3 TREATMENTS(5 MG/KG)
  2. REMICADE [Suspect]
     Dosage: RECEIVED 3 TREATMENTS(5 MG/KG)
  3. REMICADE [Suspect]
     Indication: PSORIASIS

REACTIONS (1)
  - BREAST CANCER [None]
